FAERS Safety Report 21572065 (Version 1)
Quarter: 2022Q4

REPORT INFORMATION
  Report Type: Spontaneous
  Country: US (occurrence: None)
  Receive Date: 20221108
  Receipt Date: 20221108
  Transmission Date: 20230112
  Serious: Yes (Other)
  Sender: FDA-Public Use
  Company Number: None

PATIENT
  Age: 66 Year
  Sex: Male
  Weight: 49.5 kg

DRUGS (10)
  1. CAPECITABINE [Suspect]
     Active Substance: CAPECITABINE
     Indication: Colon cancer
     Dosage: FREQUENCY : TWICE A DAY;?
     Route: 048
     Dates: start: 20220917
  2. FUROSEMIDE [Concomitant]
     Active Substance: FUROSEMIDE
  3. ONDANSETRON [Concomitant]
     Active Substance: ONDANSETRON
  4. MELOXICAM [Concomitant]
     Active Substance: MELOXICAM
  5. OMEPRAZOLE [Concomitant]
     Active Substance: OMEPRAZOLE
  6. MVASI [Concomitant]
     Active Substance: BEVACIZUMAB-AWWB
  7. OXALIPLATIN [Concomitant]
     Active Substance: OXALIPLATIN
  8. Palomosetron [Concomitant]
  9. dexamethsone [Concomitant]
  10. FOSAPREPITANT [Concomitant]
     Active Substance: FOSAPREPITANT

REACTIONS (4)
  - Palmar-plantar erythrodysaesthesia syndrome [None]
  - Nausea [None]
  - Diarrhoea [None]
  - Vomiting [None]

NARRATIVE: CASE EVENT DATE: 20221108
